FAERS Safety Report 6348491-3 (Version None)
Quarter: 2009Q3

REPORT INFORMATION
  Report Type: 
  Country: None (occurrence: None)
  Receive Date: 20090911
  Receipt Date: 20090831
  Transmission Date: 20100115
  Serious: Yes (Hospitalization)
  Sender: FDA-Public Use
  Company Number: IN-ELI_LILLY_AND_COMPANY-IN200909000028

PATIENT
  Sex: Male
  Weight: 52 kg

DRUGS (6)
  1. PEMETREXED [Suspect]
     Indication: NON-SMALL CELL LUNG CANCER
     Dosage: ON D1,CYCLICAL
     Route: 042
     Dates: start: 20090804
  2. TARCEVA [Suspect]
     Indication: NON-SMALL CELL LUNG CANCER
     Dosage: 150 MG, ON D2-14
     Route: 048
     Dates: start: 20090805
  3. FOLIC ACID [Concomitant]
     Indication: PROPHYLAXIS
     Dosage: 1000 UG, DAILY (1/D)
     Route: 048
     Dates: start: 20090730, end: 20090828
  4. VIT B12 [Concomitant]
     Indication: PROPHYLAXIS
     Dosage: 1000 UG, UNK
     Route: 030
     Dates: start: 20090730, end: 20090731
  5. DEXAMETHASONE [Concomitant]
     Indication: PROPHYLAXIS
     Dosage: 4 MG, 2/D
     Route: 048
     Dates: start: 20090803, end: 20090806
  6. BECOSULES /01353601/ [Concomitant]
     Indication: STOMATITIS
     Dates: start: 20090810, end: 20090825

REACTIONS (3)
  - DIARRHOEA [None]
  - HYPONATRAEMIA [None]
  - PYREXIA [None]
